FAERS Safety Report 20369369 (Version 1)
Quarter: 2022Q1

REPORT INFORMATION
  Report Type: Report from Study
  Country: US (occurrence: US)
  Receive Date: 20220124
  Receipt Date: 20220124
  Transmission Date: 20220424
  Serious: Yes (Life-Threatening, Hospitalization, Other)
  Sender: FDA-Public Use
  Company Number: US-JNJFOC-20220128167

PATIENT
  Age: 59 Year
  Sex: Male

DRUGS (2)
  1. SPRAVATO [Suspect]
     Active Substance: ESKETAMINE
     Indication: Depression
     Dosage: 4 TOTAL DOSES
     Dates: start: 20210615, end: 20210624
  2. SPRAVATO [Suspect]
     Active Substance: ESKETAMINE
     Dosage: 16 TOTAL DOSES
     Dates: start: 20210629, end: 20211221

REACTIONS (2)
  - Suicide attempt [Unknown]
  - Depression [Unknown]

NARRATIVE: CASE EVENT DATE: 20220114
